FAERS Safety Report 9879021 (Version 5)
Quarter: 2014Q2

REPORT INFORMATION
  Report Type: Spontaneous
  Country: US (occurrence: US)
  Receive Date: 20140206
  Receipt Date: 20140429
  Transmission Date: 20141212
  Serious: Yes (Other)
  Sender: FDA-Public Use
  Company Number: US-PFIZER INC-2014033518

PATIENT
  Age: 26 Year
  Sex: Female
  Weight: 55.33 kg

DRUGS (3)
  1. PRISTIQ [Suspect]
     Indication: DEPRESSION
     Dosage: 100 MG, DAILY
     Dates: start: 201211
  2. LIPITOR [Suspect]
     Dosage: 10 MG, UNK
  3. WELLBUTRIN [Concomitant]
     Dosage: 300 MG, UNK

REACTIONS (2)
  - Clavicle fracture [Unknown]
  - Intercepted drug dispensing error [Unknown]
